FAERS Safety Report 10342530 (Version 1)
Quarter: 2014Q3

REPORT INFORMATION
  Report Type: Spontaneous
  Country: BR (occurrence: BR)
  Receive Date: 20140725
  Receipt Date: 20140725
  Transmission Date: 20150326
  Serious: Yes (Hospitalization)
  Sender: FDA-Public Use
  Company Number: PHHY2014BR090817

PATIENT
  Age: 33 Year
  Sex: Male

DRUGS (3)
  1. PREDNISONE. [Suspect]
     Active Substance: PREDNISONE
     Indication: POLYMYOSITIS
     Dosage: 40 MG, PER DAY
  2. OXACILLIN [Suspect]
     Active Substance: OXACILLIN SODIUM
  3. METHOTREXATE [Suspect]
     Active Substance: METHOTREXATE
     Indication: POLYMYOSITIS
     Dosage: 15 MG PER WEEK

REACTIONS (13)
  - Cutaneous tuberculosis [Recovered/Resolved]
  - Nodule [Recovered/Resolved]
  - Panniculitis [Recovered/Resolved]
  - Drug ineffective [Unknown]
  - Tachypnoea [Recovered/Resolved]
  - Pyrexia [Recovered/Resolved]
  - Rash [Recovered/Resolved]
  - Thrombocytosis [Recovering/Resolving]
  - Pulmonary tuberculosis [Recovered/Resolved]
  - Leukocytosis [Recovering/Resolving]
  - Tachycardia [Recovering/Resolving]
  - Skin necrosis [Recovered/Resolved]
  - Normochromic normocytic anaemia [Recovering/Resolving]
